APPROVED DRUG PRODUCT: ZOLMITRIPTAN
Active Ingredient: ZOLMITRIPTAN
Strength: 2.5MG
Dosage Form/Route: TABLET;ORAL
Application: A206973 | Product #001 | TE Code: AB
Applicant: CHARTWELL RX SCIENCES LLC
Approved: Jun 30, 2017 | RLD: No | RS: No | Type: RX